FAERS Safety Report 24919237 (Version 1)
Quarter: 2025Q1

REPORT INFORMATION
  Report Type: Spontaneous
  Country: US (occurrence: US)
  Receive Date: 20250204
  Receipt Date: 20250204
  Transmission Date: 20250408
  Serious: Yes (Hospitalization)
  Sender: JOHNSON AND JOHNSON
  Company Number: US-JNJFOC-20241273556

PATIENT
  Age: 43 Year
  Sex: Male

DRUGS (20)
  1. RISPERDAL [Suspect]
     Active Substance: RISPERIDONE
     Indication: Product used for unknown indication
     Route: 048
  2. INGREZZA [Interacting]
     Active Substance: VALBENAZINE
     Indication: Tardive dyskinesia
     Route: 065
     Dates: start: 20240108
  3. BACLOFEN [Concomitant]
     Active Substance: BACLOFEN
     Indication: Dystonia
  4. Daflon [Concomitant]
     Indication: Seizure
  5. EFFEXOR [Concomitant]
     Active Substance: VENLAFAXINE HYDROCHLORIDE
     Indication: Seizure
  6. LAMICTAL [Concomitant]
     Active Substance: LAMOTRIGINE
     Indication: Seizure
  7. LITHIUM CARBONATE [Concomitant]
     Active Substance: LITHIUM CARBONATE
     Indication: Blood cholesterol increased
  8. EZETIMIBE [Concomitant]
     Active Substance: EZETIMIBE
     Indication: Blood cholesterol increased
  9. FENOFIBRATE [Concomitant]
     Active Substance: FENOFIBRATE
     Indication: Thyroid disorder
  10. LEVOTHYROXINE [Concomitant]
     Active Substance: LEVOTHYROXINE
     Indication: Thyroid disorder
  11. LABETALOL [Concomitant]
     Active Substance: LABETALOL
     Indication: Hypertension
  12. VASCEPA [Concomitant]
     Active Substance: ICOSAPENT ETHYL
  13. N Acetyl L Cysteine [Concomitant]
  14. PROBIOTICS NOS [Concomitant]
     Active Substance: PROBIOTICS NOS
  15. Centrum Adults [Concomitant]
  16. VITAMIN D3 [Concomitant]
     Active Substance: CHOLECALCIFEROL
  17. VITAMIN E [Concomitant]
     Active Substance: .ALPHA.-TOCOPHEROL
  18. VITAMIN C [Concomitant]
     Active Substance: ASCORBIC ACID
  19. VITAMIN B12 [Concomitant]
     Active Substance: CYANOCOBALAMIN
  20. METFORMIN [Concomitant]
     Active Substance: METFORMIN HYDROCHLORIDE
     Indication: Weight increased
     Dosage: 500 MG TABLET DAILY FOR 2 WEEKS, INCREASE BY 1 TABLET DAILY UNTIL 4 TABLETS PER DAY, PATIENT NOW AT

REACTIONS (3)
  - Psychotic disorder [Recovering/Resolving]
  - Drug interaction [Recovering/Resolving]
  - Torticollis [Unknown]
